FAERS Safety Report 16464126 (Version 1)
Quarter: 2019Q2

REPORT INFORMATION
  Report Type: Spontaneous
  Country: US (occurrence: US)
  Receive Date: 20190621
  Receipt Date: 20190621
  Transmission Date: 20190711
  Serious: No
  Sender: FDA-Public Use
  Company Number: US-BAYER-2019-118535

PATIENT
  Age: 70 Year
  Sex: Female

DRUGS (1)
  1. MIRALAX [Suspect]
     Active Substance: POLYETHYLENE GLYCOL 3350
     Indication: COLONOSCOPY
     Dosage: 4 TO 8 OUNCES EVERY 20 MINUTES
     Route: 048
     Dates: start: 20190619, end: 20190619

REACTIONS (3)
  - Off label use [None]
  - Product use in unapproved indication [None]
  - Muscle spasms [Recovered/Resolved]

NARRATIVE: CASE EVENT DATE: 20190619
